FAERS Safety Report 9373781 (Version 1)
Quarter: 2013Q2

REPORT INFORMATION
  Report Type: Spontaneous
  Country: US (occurrence: US)
  Receive Date: 20130628
  Receipt Date: 20130628
  Transmission Date: 20140414
  Serious: Yes (Other)
  Sender: FDA-Public Use
  Company Number: US-AMGEN-USASP2013044936

PATIENT
  Age: 43 Year
  Sex: Female
  Weight: 84.35 kg

DRUGS (5)
  1. ENBREL [Suspect]
     Indication: PRODUCT USED FOR UNKNOWN INDICATION
     Dosage: 50 MG, QWK
     Route: 058
  2. SINGULAIR [Concomitant]
     Dosage: 4 MG, UNK
  3. LEVOCETIRIN [Concomitant]
     Dosage: 5 MG, UNK
  4. VITAMIN D3 [Concomitant]
     Dosage: 10000 UNIT, UNK
  5. TRAMADOL HCL [Concomitant]
     Dosage: 150 MG, ER  UNK

REACTIONS (1)
  - Arthropathy [Unknown]
